FAERS Safety Report 15711064 (Version 1)
Quarter: 2018Q4

REPORT INFORMATION
  Report Type: Spontaneous
  Country: RU (occurrence: RU)
  Receive Date: 20181211
  Receipt Date: 20181211
  Transmission Date: 20190205
  Serious: Yes (Hospitalization)
  Sender: FDA-Public Use
  Company Number: PHHY2018RU181328

PATIENT
  Age: 59 Year
  Sex: Female
  Weight: 80 kg

DRUGS (1)
  1. EDICIN [Suspect]
     Active Substance: VANCOMYCIN HYDROCHLORIDE
     Indication: SYSTEMIC INFLAMMATORY RESPONSE SYNDROME
     Dosage: 2 G, QD
     Route: 042
     Dates: start: 20180403, end: 20180403

REACTIONS (2)
  - Urticaria [Recovering/Resolving]
  - Hyperaemia [Recovering/Resolving]
